FAERS Safety Report 7967806-3 (Version None)
Quarter: 2011Q4

REPORT INFORMATION
  Report Type: 
  Country: None (occurrence: None)
  Receive Date: 20111209
  Receipt Date: 20111206
  Transmission Date: 20120403
  Serious: Yes (Hospitalization)
  Sender: FDA-Public Use
  Company Number: FR-PFIZER INC-2011297230

PATIENT
  Age: 75 Year
  Sex: Female

DRUGS (6)
  1. AMOXICILLIN [Suspect]
     Dosage: 1 G, 1X/DAY
     Route: 048
     Dates: start: 20111017, end: 20111022
  2. ULTRA-LEVURE [Suspect]
     Dosage: UNK
     Route: 048
     Dates: start: 20111017, end: 20111024
  3. KETOPROFEN [Suspect]
     Indication: BACK PAIN
     Dosage: 100 MG, 2X/DAY
     Route: 030
     Dates: start: 20111006, end: 20111008
  4. BECLONE [Suspect]
     Dosage: 250 UG/DOSE
     Route: 055
     Dates: start: 20111017, end: 20111024
  5. AMLODIPINE BESYLATE [Suspect]
     Indication: HYPERTENSION
     Dosage: 5 MG, 1X/DAY
     Route: 048
     Dates: start: 20111017, end: 20111024
  6. TRAMADOL HCL [Concomitant]
     Indication: BACK PAIN
     Dosage: 100 MG, UNK
     Route: 048
     Dates: start: 20111017

REACTIONS (10)
  - EOSINOPHILIA [None]
  - FALL [None]
  - PYREXIA [None]
  - CYTOLYTIC HEPATITIS [None]
  - EXCORIATION [None]
  - DRUG RASH WITH EOSINOPHILIA AND SYSTEMIC SYMPTOMS [None]
  - DERMATITIS EXFOLIATIVE [None]
  - RASH MACULAR [None]
  - RASH PAPULAR [None]
  - RENAL FAILURE [None]
